FAERS Safety Report 5696194-0 (Version None)
Quarter: 2008Q2

REPORT INFORMATION
  Report Type: 
  Country: None (occurrence: None)
  Receive Date: 20080404
  Receipt Date: 20080404
  Transmission Date: 20081010
  Serious: Yes (Hospitalization, Other)
  Sender: FDA-Public Use
  Company Number: None

PATIENT
  Age: 51 Year
  Sex: Female
  Weight: 68.0396 kg

DRUGS (2)
  1. ZYRTEC [Suspect]
     Indication: PHARYNGEAL DISORDER
     Dosage: 20 MG 2X DAILY
     Dates: start: 20050501, end: 20061101
  2. ZYRTEC [Suspect]
     Indication: URTICARIA
     Dosage: 20 MG 2X DAILY
     Dates: start: 20050501, end: 20061101

REACTIONS (3)
  - GASTRIC ULCER [None]
  - OVERDOSE [None]
  - RENAL CELL CARCINOMA [None]
